FAERS Safety Report 12724753 (Version 1)
Quarter: 2016Q3

REPORT INFORMATION
  Report Type: Spontaneous
  Country: US (occurrence: US)
  Receive Date: 20160907
  Receipt Date: 20160907
  Transmission Date: 20161109
  Serious: Yes (Life-Threatening, Disabling, Other)
  Sender: FDA-Public Use
  Company Number: None

PATIENT
  Age: 36 Year
  Sex: Female
  Weight: 67.5 kg

DRUGS (3)
  1. APTIOM [Suspect]
     Active Substance: ESLICARBAZEPINE ACETATE
     Indication: EPILEPSY
     Route: 048
  2. DILANTIN [Concomitant]
     Active Substance: PHENYTOIN
  3. TOPAMAX [Concomitant]
     Active Substance: TOPIRAMATE

REACTIONS (8)
  - Coordination abnormal [None]
  - Vision blurred [None]
  - Movement disorder [None]
  - Suicidal ideation [None]
  - Dizziness [None]
  - Memory impairment [None]
  - Limb discomfort [None]
  - Crying [None]

NARRATIVE: CASE EVENT DATE: 20160809
